FAERS Safety Report 9253691 (Version 1)
Quarter: 2013Q2

REPORT INFORMATION
  Report Type: Spontaneous
  Country: US (occurrence: US)
  Receive Date: 20130425
  Receipt Date: 20130425
  Transmission Date: 20140414
  Serious: No
  Sender: FDA-Public Use
  Company Number: US-009507513-1304USA014572

PATIENT
  Sex: 0

DRUGS (2)
  1. SAPHRIS [Suspect]
     Dosage: 10 MG TWICE DAILY
     Route: 060
  2. SAPHRIS [Suspect]
     Dosage: 5 MG TWICE DAILY
     Route: 060

REACTIONS (1)
  - Sedation [Unknown]
